FAERS Safety Report 25179289 (Version 2)
Quarter: 2025Q2

REPORT INFORMATION
  Report Type: Spontaneous
  Country: IT (occurrence: IT)
  Receive Date: 20250409
  Receipt Date: 20250602
  Transmission Date: 20250717
  Serious: Yes (Other)
  Sender: ORGANON
  Company Number: IT-ORGANON-O2504ITA000645

PATIENT
  Sex: Male

DRUGS (3)
  1. SINEMET [Suspect]
     Active Substance: CARBIDOPA\LEVODOPA
     Indication: Parkinson^s disease
     Route: 048
  2. NEUPRO [Concomitant]
     Active Substance: ROTIGOTINE
  3. AZILECT [RASAGILINE] [Concomitant]

REACTIONS (2)
  - Parkinson^s disease [Unknown]
  - Sciatica [Unknown]
